FAERS Safety Report 13514756 (Version 4)
Quarter: 2017Q4

REPORT INFORMATION
  Report Type: Spontaneous
  Country: DE (occurrence: DE)
  Receive Date: 20170504
  Receipt Date: 20171016
  Transmission Date: 20180320
  Serious: Yes (Other)
  Sender: FDA-Public Use
  Company Number: DE-TEVA-764795GER

PATIENT
  Age: 40 Year
  Sex: Female
  Weight: 93 kg

DRUGS (1)
  1. CINQAERO 10 MG/ML KONZENTRAT ZUR HERSTELLUNG EINER INFUSIONSLOESUNG [Suspect]
     Active Substance: RESLIZUMAB
     Indication: ASTHMA
     Dosage: FIRST ADMINISTRATION, VIAL VOLUME 10 ML
     Route: 042
     Dates: start: 20170425, end: 20170425

REACTIONS (1)
  - Anaphylactic reaction [Recovered/Resolved]

NARRATIVE: CASE EVENT DATE: 20170425
